FAERS Safety Report 8177485-0 (Version None)
Quarter: 2012Q1

REPORT INFORMATION
  Report Type: 
  Country: None (occurrence: None)
  Receive Date: 20120301
  Receipt Date: 20120222
  Transmission Date: 20120608
  Serious: Yes (Other)
  Sender: FDA-Public Use
  Company Number: CA-JNJFOC-20120211478

PATIENT
  Sex: Male
  Weight: 104.5 kg

DRUGS (4)
  1. PLENDIL [Concomitant]
  2. REMICADE [Suspect]
     Indication: PSORIATIC ARTHROPATHY
     Route: 042
     Dates: start: 20031028
  3. DIOVAN [Concomitant]
  4. INH [Concomitant]

REACTIONS (2)
  - KERATITIS [None]
  - PSORIASIS [None]
